FAERS Safety Report 17988624 (Version 4)
Quarter: 2020Q3

REPORT INFORMATION
  Report Type: Spontaneous
  Country: US (occurrence: US)
  Receive Date: 20200707
  Receipt Date: 20200928
  Transmission Date: 20201103
  Serious: No
  Sender: FDA-Public Use
  Company Number: US-PFIZER INC-2020254612

PATIENT
  Age: 64 Year
  Sex: Female
  Weight: 124.74 kg

DRUGS (1)
  1. SKELAXIN [Suspect]
     Active Substance: METAXALONE
     Indication: MUSCLE SPASMS
     Dosage: 800 MG, 4X/DAY; (TOOK STUFF AT 12 AND 6, AND 12 AND 6)
     Dates: end: 202001

REACTIONS (6)
  - Asthma [Unknown]
  - Dry mouth [Unknown]
  - Gait disturbance [Unknown]
  - Loss of personal independence in daily activities [Unknown]
  - Lymphoedema [Unknown]
  - Weight increased [Unknown]
